FAERS Safety Report 8457406-3 (Version None)
Quarter: 2012Q2

REPORT INFORMATION
  Report Type: 
  Country: None (occurrence: None)
  Receive Date: 20120621
  Receipt Date: 20120618
  Transmission Date: 20120825
  Serious: Yes (Hospitalization, Other)
  Sender: FDA-Public Use
  Company Number: CHPA2012US011781

PATIENT
  Age: 41 Year
  Sex: Female

DRUGS (3)
  1. PREVACID 24 HR [Suspect]
     Dosage: 15 MG, QD
     Route: 048
     Dates: start: 20120530, end: 20120601
  2. PREVACID 24 HR [Suspect]
     Indication: GASTROOESOPHAGEAL REFLUX DISEASE
     Dosage: 15 MG, QD
     Dates: start: 20120301, end: 20120301
  3. PREVACID 24 HR [Suspect]
     Dosage: 15 MG, QD
     Route: 048
     Dates: start: 20120601

REACTIONS (12)
  - BACK PAIN [None]
  - DISEASE RECURRENCE [None]
  - INAPPROPRIATE SCHEDULE OF DRUG ADMINISTRATION [None]
  - CHEST DISCOMFORT [None]
  - CYSTITIS [None]
  - URINARY TRACT INFECTION [None]
  - HYPOAESTHESIA [None]
  - THROAT IRRITATION [None]
  - OFF LABEL USE [None]
  - DYSURIA [None]
  - URINARY RETENTION [None]
  - INCORRECT DRUG ADMINISTRATION DURATION [None]
